FAERS Safety Report 19866323 (Version 1)
Quarter: 2021Q3

REPORT INFORMATION
  Report Type: Report from Study
  Country: DK (occurrence: DK)
  Receive Date: 20210921
  Receipt Date: 20210921
  Transmission Date: 20211014
  Serious: Yes (Life-Threatening)
  Sender: FDA-Public Use
  Company Number: DK-TAKEDA-2021TUS058438

PATIENT
  Age: 69 Year
  Sex: Female

DRUGS (3)
  1. CARBOPLATIN. [Concomitant]
     Active Substance: CARBOPLATIN
     Dosage: UNK
     Route: 065
  2. VINORELBINE [Concomitant]
     Active Substance: VINORELBINE TARTRATE
     Dosage: UNK
     Route: 065
  3. MOBOCERTINIB. [Suspect]
     Active Substance: MOBOCERTINIB
     Indication: NON-SMALL CELL LUNG CANCER
     Dosage: 160 MILLIGRAM, QD
     Route: 042
     Dates: start: 20210727

REACTIONS (1)
  - Drug ineffective [Unknown]
